FAERS Safety Report 6393085-7 (Version None)
Quarter: 2009Q4

REPORT INFORMATION
  Report Type: 
  Country: None (occurrence: None)
  Receive Date: 20091008
  Receipt Date: 20090929
  Transmission Date: 20100525
  Serious: Yes (Hospitalization)
  Sender: FDA-Public Use
  Company Number: DE-ROCHE-659448

PATIENT
  Sex: Male
  Weight: 30.2 kg

DRUGS (4)
  1. MYCOPHENOLATE MOFETIL [Suspect]
     Dosage: DOSE INCREASED AGAIN
     Route: 065
  2. MYCOPHENOLATE MOFETIL [Suspect]
     Dosage: DOSE LOWERED
     Route: 065
     Dates: start: 20060718
  3. MYCOPHENOLATE MOFETIL [Suspect]
     Route: 065
  4. CYCLOSPORINE [Suspect]
     Route: 065

REACTIONS (5)
  - ACIDOSIS [None]
  - BRONCHITIS [None]
  - DEHYDRATION [None]
  - DIARRHOEA [None]
  - TRANSPLANT REJECTION [None]
